FAERS Safety Report 24561904 (Version 1)
Quarter: 2024Q4

REPORT INFORMATION
  Report Type: Spontaneous
  Country: US (occurrence: US)
  Receive Date: 20241029
  Receipt Date: 20241029
  Transmission Date: 20250115
  Serious: No
  Sender: PAREXEL
  Company Number: US-TETRAPHASE PHARMACEUTICALS, INC.-2023-INNO-US000062

PATIENT

DRUGS (1)
  1. XERAVA [Suspect]
     Active Substance: ERAVACYCLINE DIHYDROCHLORIDE
     Indication: Acinetobacter test positive
     Dosage: UNK
     Route: 042

REACTIONS (1)
  - Off label use [Unknown]
